FAERS Safety Report 25705814 (Version 1)
Quarter: 2025Q3

REPORT INFORMATION
  Report Type: Spontaneous
  Country: US (occurrence: None)
  Receive Date: 20250819
  Receipt Date: 20250819
  Transmission Date: 20251020
  Serious: Yes (Disabling, Other)
  Sender: FDA-CTU
  Company Number: None

PATIENT
  Age: 70 Year
  Sex: Male
  Weight: 76.5 kg

DRUGS (2)
  1. TRELSTAR [Suspect]
     Active Substance: TRIPTORELIN PAMOATE
     Indication: Prostate cancer
     Route: 030
     Dates: start: 20250613
  2. General daily vitamin [Concomitant]

REACTIONS (17)
  - Depression [None]
  - Brain fog [None]
  - Vertigo [None]
  - Mood swings [None]
  - Apathy [None]
  - Vision blurred [None]
  - Hyperventilation [None]
  - Fear of falling [None]
  - Asthenia [None]
  - Asthenia [None]
  - Muscle atrophy [None]
  - Weight decreased [None]
  - Rash [None]
  - Headache [None]
  - Hot flush [None]
  - Chills [None]
  - Incontinence [None]

NARRATIVE: CASE EVENT DATE: 20250613
